FAERS Safety Report 8936285 (Version 1)
Quarter: 2012Q4

REPORT INFORMATION
  Report Type: 
  Country: US (occurrence: US)
  Receive Date: 20121130
  Receipt Date: 20121130
  Transmission Date: 20130627
  Serious: No
  Sender: FDA-Public Use
  Company Number: US-009507513-1211USA004720

PATIENT

DRUGS (25)
  1. COZAAR [Suspect]
  2. HYZAAR [Suspect]
  3. ZOLPIDEM TARTRATE [Concomitant]
     Indication: SLEEP DISORDER
     Dosage: 5 mg, 1/2 at bed + if needed !/2 at 3-4 am
  4. TEKTURNA [Concomitant]
     Indication: BLOOD PRESSURE INCREASED
     Dosage: 150 mg, at noon + 6pm (2 daily)
  5. RANITIDINE [Concomitant]
     Indication: GASTROOESOPHAGEAL REFLUX DISEASE
     Dosage: 150 mg, twice daily (noon + bed)
  6. SYNTHROID [Concomitant]
     Indication: THYROID DISORDER
     Dosage: 88 mcg, 1 before breakfast
  7. VERAPAMIL [Concomitant]
     Dosage: 240 mg, 1 am and 1 pm
  8. BUMETANIDE [Concomitant]
     Indication: BLOOD PRESSURE INCREASED
     Dosage: UNK mg, qd noon
  9. PRAVASTATIN SODIUM [Concomitant]
     Indication: BLOOD CHOLESTEROL
     Dosage: 20mg, pm
  10. SERTRALINE HYDROCHLORIDE [Concomitant]
     Indication: STRESS
     Dosage: 50 mg, qd, am
  11. PROTONIX [Concomitant]
     Indication: GASTROOESOPHAGEAL REFLUX DISEASE
     Dosage: 40 mg, am (before eating 15 min)
  12. HYDRALAZINE [Concomitant]
     Indication: BLOOD PRESSURE
     Dosage: 10 mg, prn up to 3x a day (only when needed)
  13. ATACAND [Concomitant]
     Indication: BLOOD PRESSURE
     Dosage: 32 mg, qd, am
  14. ALLEGRA [Concomitant]
     Indication: HYPERSENSITIVITY
     Dosage: 90 1 daily (sometimes 180 daily)
  15. VITAMIN B COMPLEX [Concomitant]
     Dosage: 50 mg, 1 daily
  16. CALCIUM (UNSPECIFIED) (+) VITAMIN D (UNSPECIFIED) [Concomitant]
     Indication: OSTEOARTHRITIS
     Dosage: 500 mg, 2 daily
  17. VITAMIN D (UNSPECIFIED) [Concomitant]
     Indication: OSTEOARTHRITIS
     Dosage: 2,000, 1 daily
  18. NITRO [Concomitant]
     Indication: CHEST PAIN
     Dosage: 0.2mg/hr, only used if chest pain
  19. ALBUTEROL [Concomitant]
     Dosage: 2 puffs emergancy inhallor
  20. ASPIRIN [Concomitant]
     Dosage: 80 mg, 2 daily
  21. OCUVITE [Concomitant]
     Dosage: 1 daily
  22. ADVAIR [Concomitant]
     Dosage: 250/50, 1 puff am, 1 pm
  23. OMEGA-3 MARINE TRIGLYCERIDES [Concomitant]
     Dosage: 1.5 daily
  24. METAMUCIL [Concomitant]
     Dosage: 1 tab daily
  25. FLONASE [Concomitant]
     Dosage: 50mcg/act, s sprays p. nostril daily

REACTIONS (1)
  - Drug hypersensitivity [Unknown]
